FAERS Safety Report 6430869-0 (Version None)
Quarter: 2009Q4

REPORT INFORMATION
  Report Type: 
  Country: None (occurrence: None)
  Receive Date: 20091106
  Receipt Date: 20091026
  Transmission Date: 20100525
  Serious: Yes (Other)
  Sender: FDA-Public Use
  Company Number: DE-PFIZER INC-2009288040

PATIENT
  Sex: Male

DRUGS (1)
  1. TAFIL [Suspect]
     Dosage: UNK
     Route: 048
     Dates: end: 20091019

REACTIONS (1)
  - INTRAOCULAR PRESSURE INCREASED [None]
